FAERS Safety Report 6703666-6 (Version None)
Quarter: 2010Q2

REPORT INFORMATION
  Report Type: 
  Country: None (occurrence: None)
  Receive Date: 20100430
  Receipt Date: 20100423
  Transmission Date: 20101027
  Serious: No
  Sender: FDA-Public Use
  Company Number: JP-ASTRAZENECA-2010SE16143

PATIENT
  Age: 63 Year
  Sex: Male
  Weight: 68 kg

DRUGS (7)
  1. CRESTOR [Suspect]
     Indication: HYPERLIPIDAEMIA
     Route: 048
     Dates: start: 20081128, end: 20090626
  2. CRESTOR [Suspect]
     Route: 048
     Dates: start: 20090828, end: 20091023
  3. COVERSYL [Concomitant]
     Indication: HYPERTENSION
     Route: 048
  4. OLMESARTAN MEDOXOMIL [Concomitant]
     Indication: HYPERTENSION
     Route: 048
  5. HALCION [Concomitant]
     Indication: HYPERTENSION
     Route: 048
  6. NOVOLIN N [Concomitant]
     Indication: DIABETES MELLITUS
     Route: 062
  7. NOVOLIN R [Concomitant]
     Indication: DIABETES MELLITUS
     Route: 062

REACTIONS (2)
  - LIVER DISORDER [None]
  - MALAISE [None]
